FAERS Safety Report 7920225-8 (Version None)
Quarter: 2011Q4

REPORT INFORMATION
  Report Type: 
  Country: None (occurrence: None)
  Receive Date: 20111117
  Receipt Date: 20111105
  Transmission Date: 20120403
  Serious: Yes (Death, Other)
  Sender: FDA-Public Use
  Company Number: US-PFIZER INC-2011261687

PATIENT
  Sex: Male

DRUGS (15)
  1. ZOFRAN [Concomitant]
     Indication: NAUSEA
     Dosage: 8 MG, EVERY 8 HOURS, AS NEEDED
     Route: 042
  2. LEVOSALBUTAMOL [Concomitant]
     Dosage: 1.25 MG, EVERY 6 HOURS VIA NEBULIZED TREATMENT
  3. LEVOFLOXACIN [Concomitant]
     Dosage: 750 MG, DAILY
     Route: 042
  4. IPRATROPIUM BROMIDE [Concomitant]
     Dosage: 2.5 ML, EVERY 6 HOURS VIA NEBULIZED TREATMENT
  5. ZOFRAN [Concomitant]
     Indication: VOMITING
  6. SENOKOT [Concomitant]
     Indication: CONSTIPATION
     Dosage: 2 TABLETS, 2X/DAY, AS NEEDED
     Route: 048
  7. PREDNISONE TAB [Suspect]
     Indication: PROSTATE CANCER METASTATIC
     Dosage: 5 MG, 2X/DAY
     Route: 048
     Dates: start: 20110723, end: 20111024
  8. OXYCODONE [Concomitant]
     Indication: PAIN
     Dosage: 5 MG, EVERY 4 HOURS, AS NEEDED
     Route: 048
  9. ABIRATERONE ACETATE [Suspect]
     Indication: PROSTATE CANCER METASTATIC
     Dosage: 1000 MG, 1X/DAY
     Route: 048
     Dates: start: 20110723, end: 20111024
  10. ACETAMINOPHEN [Concomitant]
     Indication: PYREXIA
     Dosage: 650 MG, EVERY 4 HOURS, AS NEEDED
     Route: 048
  11. ATORVASTATIN [Concomitant]
     Dosage: 10 MG, DAILY
     Route: 048
  12. SUNITINIB MALATE [Suspect]
     Indication: PROSTATE CANCER METASTATIC
     Dosage: 37.5 MG, DAILY 2 WEEKS ON/ 1 WEEK OFF
     Route: 048
     Dates: start: 20111011
  13. LOVENOX [Concomitant]
     Dosage: 40 MG, DAILY
     Route: 058
  14. ZOSYN [Concomitant]
     Dosage: 3.375 G, EVERY 6 HOURS
  15. TAMSULOSIN HYDROCHLORIDE [Concomitant]
     Dosage: 0.4 MG, DAILY
     Route: 048

REACTIONS (2)
  - HYPOTENSION [None]
  - PNEUMONIA [None]
